FAERS Safety Report 13046383 (Version 2)
Quarter: 2016Q4

REPORT INFORMATION
  Report Type: Report from Study
  Country: BR (occurrence: BR)
  Receive Date: 20161220
  Receipt Date: 20161230
  Transmission Date: 20170207
  Serious: Yes (Hospitalization, Other)
  Sender: FDA-Public Use
  Company Number: PHHY2015BR156036

PATIENT
  Sex: Male
  Weight: 59 kg

DRUGS (4)
  1. ASA [Concomitant]
     Active Substance: ASPIRIN
     Indication: PRODUCT USED FOR UNKNOWN INDICATION
     Route: 065
  2. DIPIRONA [Concomitant]
     Active Substance: METAMIZOLE
     Indication: PRODUCT USED FOR UNKNOWN INDICATION
     Route: 065
  3. EXJADE [Suspect]
     Active Substance: DEFERASIROX
     Indication: SICKLE CELL ANAEMIA
     Dosage: 3 DF (25 MG/KG), QD
     Route: 048
  4. EXJADE [Suspect]
     Active Substance: DEFERASIROX
     Dosage: 1500 MG, QD
     Route: 048
     Dates: start: 2013

REACTIONS (18)
  - Abdominal discomfort [Unknown]
  - Pyrexia [Recovering/Resolving]
  - Decreased appetite [Unknown]
  - Skin warm [Unknown]
  - Pruritus [Unknown]
  - Nausea [Unknown]
  - Sickle cell anaemia with crisis [Unknown]
  - Alopecia [Not Recovered/Not Resolved]
  - Constipation [Unknown]
  - Weight decreased [Unknown]
  - Erythema [Unknown]
  - Gastritis [Recovering/Resolving]
  - Retching [Unknown]
  - Dandruff [Not Recovered/Not Resolved]
  - Abdominal pain upper [Recovering/Resolving]
  - Diarrhoea [Recovering/Resolving]
  - Increased appetite [Unknown]
  - Hair growth abnormal [Unknown]
